FAERS Safety Report 4668205-2 (Version None)
Quarter: 2005Q2

REPORT INFORMATION
  Report Type: 
  Country: None (occurrence: None)
  Receive Date: 20050523
  Receipt Date: 20041221
  Transmission Date: 20051028
  Serious: Yes (Other)
  Sender: FDA-Public Use
  Company Number: PHEH2004US13573

PATIENT
  Age: 58 Year
  Sex: Female

DRUGS (9)
  1. PAMIDRONATE DISODIUM [Suspect]
     Indication: MULTIPLE MYELOMA
     Dosage: 90 MG, Q4WK
     Route: 042
     Dates: start: 19980806, end: 20040804
  2. THALIDOMIDE [Concomitant]
     Dosage: 400 MG, QHS
     Dates: start: 19990524, end: 19991108
  3. THALIDOMIDE [Concomitant]
     Dosage: 100 MG, QHS
     Dates: start: 19991109, end: 20010220
  4. THALIDOMIDE [Concomitant]
     Dosage: 100 MG, QHS
     Dates: start: 20030618
  5. DEXAMETHASONE [Concomitant]
     Dosage: 40 MG, X4DAYS   Q4WK
     Dates: start: 19980724, end: 19981101
  6. DEXAMETHASONE [Concomitant]
     Dosage: 40 MG, QW
     Dates: start: 20030618, end: 20030801
  7. VELCADE [Concomitant]
     Dosage: 1.3 MG/M2, DAY 1,4,8,11 Q21DAY
     Dates: start: 20030812, end: 20031202
  8. EDAP [Concomitant]
     Dosage: CYCLE1
     Dates: start: 19990216
  9. EDAP [Concomitant]
     Dosage: CYCLE 2
     Dates: start: 19990329

REACTIONS (2)
  - JAW DISORDER [None]
  - OSTEONECROSIS [None]
